FAERS Safety Report 16853886 (Version 1)
Quarter: 2019Q3

REPORT INFORMATION
  Report Type: Spontaneous
  Country: FR (occurrence: FR)
  Receive Date: 20190926
  Receipt Date: 20190926
  Transmission Date: 20191005
  Serious: Yes (Other)
  Sender: FDA-Public Use
  Company Number: FR-AMGEN-FRASP2019156188

PATIENT

DRUGS (3)
  1. HEPARINE [HEPARIN] [Concomitant]
     Active Substance: HEPARIN SODIUM
  2. LEVOCARNIL [LEVOCARNITINE] [Concomitant]
     Active Substance: LEVOCARNITINE
  3. ARANESP [Suspect]
     Active Substance: DARBEPOETIN ALFA
     Indication: PRODUCT USED FOR UNKNOWN INDICATION
     Dosage: UNK
     Route: 065

REACTIONS (1)
  - Haemodialysis [Unknown]
